FAERS Safety Report 7010629-2 (Version None)
Quarter: 2010Q3

REPORT INFORMATION
  Report Type: 
  Country: None (occurrence: None)
  Receive Date: 20100923
  Receipt Date: 20100916
  Transmission Date: 20110219
  Serious: Yes (Life-Threatening, Hospitalization, Disabling)
  Sender: FDA-Public Use
  Company Number: DE-AMGEN-QUU429721

PATIENT
  Sex: Female
  Weight: 86 kg

DRUGS (28)
  1. ENBREL [Suspect]
     Indication: RHEUMATOID ARTHRITIS
     Route: 058
     Dates: start: 20090507, end: 20090527
  2. ENBREL [Suspect]
     Route: 058
     Dates: start: 20090528, end: 20090722
  3. ENBREL [Suspect]
     Route: 058
     Dates: start: 20090723, end: 20090730
  4. PREDNISOLONE [Suspect]
     Indication: RHEUMATOID ARTHRITIS
     Dosage: 15MG PER DAY OR PARTIALLY MORE THAN 15MG PER DAY
     Route: 048
     Dates: start: 20060301, end: 20060501
  5. PREDNISOLONE [Suspect]
     Dosage: 15MG PER DAY OR PARTIALLY MORE THAN 15MG PER DAY
     Dates: start: 20070501, end: 20100601
  6. PREDNISOLONE [Suspect]
     Dosage: 10MG PER DAY
     Route: 048
     Dates: start: 20100701
  7. TOREM [Concomitant]
     Indication: HYPERTENSION
     Route: 048
     Dates: start: 20071001
  8. TOREM [Concomitant]
     Indication: VENOUS INSUFFICIENCY
  9. BISOPROLOL FUMARATE [Concomitant]
     Indication: HYPERTENSION
     Dosage: 2.5MG PER DAY
     Dates: start: 20080401
  10. BISOPROLOL FUMARATE [Concomitant]
     Indication: CARDIAC FAILURE
  11. RAMIPRIL [Concomitant]
     Indication: HYPERTENSION
     Dosage: 5MG PER DAY
     Dates: start: 20080401
  12. RAMIPRIL [Concomitant]
     Indication: CARDIAC FAILURE
  13. HYDROCHLOROTHIAZIDE [Concomitant]
     Indication: HYPERTENSION
     Dosage: 25MG PER DAY
     Dates: start: 20080401
  14. HYDROCHLOROTHIAZIDE [Concomitant]
     Indication: CARDIAC FAILURE
  15. FALITHROM [Concomitant]
     Indication: PELVIC VENOUS THROMBOSIS
     Dosage: 3 DOSES PER DAY ACCORDING TO QUICK'S VALUE
     Route: 048
     Dates: start: 20080101, end: 20100801
  16. FALITHROM [Concomitant]
     Indication: PULMONARY EMBOLISM
  17. ALLOPURINOL [Concomitant]
     Indication: HYPERURICAEMIA
     Dosage: 200MG (FREQUENCY UNKNOWN)
     Dates: start: 20090301
  18. CELEBREX [Concomitant]
     Indication: RHEUMATOID ARTHRITIS
     Dates: start: 20090501
  19. VENLAFAXINE HYDROCHLORIDE [Concomitant]
     Dosage: DAILY DOSE UP TO 150MG PER DAY, THEN REDUCED DOWN TO 37.5MG PER DAY
     Dates: end: 20100701
  20. LORAZEPAM [Concomitant]
  21. STANGYL [Concomitant]
  22. AMBROXOL [Concomitant]
  23. OXAZEPAM [Concomitant]
     Dosage: UNKNOWN DOSE ON DEMAND
  24. TRAMADOL HCL [Concomitant]
     Dosage: UNKNOWN DOSE ON DEMAND
  25. KALINOR [Concomitant]
     Dosage: UNKNOWN
  26. VALORON N [Concomitant]
  27. PANTOPRAZOLE SODIUM [Concomitant]
     Indication: GASTRITIS PROPHYLAXIS
     Dosage: 20MG PER DAY
     Dates: start: 20080701
  28. PANTOPRAZOLE SODIUM [Concomitant]
     Route: 042

REACTIONS (9)
  - ACCIDENTAL OVERDOSE [None]
  - ACUTE RESPIRATORY FAILURE [None]
  - ADJUSTMENT DISORDER [None]
  - CRUSH SYNDROME [None]
  - EMPYEMA [None]
  - NECROTISING FASCIITIS [None]
  - SEPTIC SHOCK [None]
  - SKIN ULCER [None]
  - TUBULOINTERSTITIAL NEPHRITIS [None]
